FAERS Safety Report 19527808 (Version 2)
Quarter: 2021Q3

REPORT INFORMATION
  Report Type: Spontaneous
  Country: US (occurrence: US)
  Receive Date: 20210713
  Receipt Date: 20210915
  Transmission Date: 20211014
  Serious: No
  Sender: FDA-Public Use
  Company Number: US-PFIZER INC-2021817454

PATIENT
  Age: 67 Year
  Sex: Female
  Weight: 53.07 kg

DRUGS (2)
  1. LIOTHYRONINE [Concomitant]
     Active Substance: LIOTHYRONINE
     Dosage: 12.5 UG, DAILY
  2. LEVOXYL [Suspect]
     Active Substance: LEVOTHYROXINE SODIUM
     Indication: HYPOTHYROIDISM
     Dosage: 50 MCG, 3 DAYS A WEEK, AND TAKES 75MCG, 4 DAYS A WEEK
     Dates: start: 1999

REACTIONS (4)
  - Fatigue [Unknown]
  - Drug ineffective [Unknown]
  - Off label use [Unknown]
  - Product complaint [Unknown]
